FAERS Safety Report 24596776 (Version 4)
Quarter: 2025Q2

REPORT INFORMATION
  Report Type: Spontaneous
  Country: US (occurrence: US)
  Receive Date: 20241110
  Receipt Date: 20250510
  Transmission Date: 20250717
  Serious: Yes (Hospitalization)
  Sender: SANOFI AVENTIS
  Company Number: US-SA-2024SA309304

PATIENT
  Age: 84 Year
  Sex: Female
  Weight: 102.41 kg

DRUGS (16)
  1. KEVZARA [Suspect]
     Active Substance: SARILUMAB
     Indication: Polymyalgia rheumatica
     Dosage: 200 MG, QOW
     Route: 058
     Dates: start: 20241008, end: 202412
  2. TELMISARTAN [Concomitant]
     Active Substance: TELMISARTAN
  3. ELIQUIS [Concomitant]
     Active Substance: APIXABAN
  4. BACLOFEN [Concomitant]
     Active Substance: BACLOFEN
  5. CRESTOR [Concomitant]
     Active Substance: ROSUVASTATIN CALCIUM
  6. CEFDINIR [Concomitant]
     Active Substance: CEFDINIR
  7. OXYCODONE AND ACETAMINOPHEN [Concomitant]
     Active Substance: ACETAMINOPHEN\OXYCODONE HYDROCHLORIDE
  8. OMEPRAZOLE [Concomitant]
     Active Substance: OMEPRAZOLE
  9. CELEBREX [Concomitant]
     Active Substance: CELECOXIB
  10. CYMBALTA [Concomitant]
     Active Substance: DULOXETINE HYDROCHLORIDE
  11. PREDNISONE [Concomitant]
     Active Substance: PREDNISONE
  12. TRIAMCINOLONE ACETONIDE [Concomitant]
     Active Substance: TRIAMCINOLONE ACETONIDE
  13. COSOPT [Concomitant]
     Active Substance: DORZOLAMIDE HYDROCHLORIDE\TIMOLOL MALEATE
  14. DILTIAZEM [Concomitant]
     Active Substance: DILTIAZEM
  15. TOPROL XL [Concomitant]
     Active Substance: METOPROLOL SUCCINATE
  16. OXYBUTYNIN CHLORIDE [Concomitant]
     Active Substance: OXYBUTYNIN CHLORIDE

REACTIONS (5)
  - Fall [Unknown]
  - Tremor [Unknown]
  - Feeling abnormal [Unknown]
  - Urinary tract infection [Recovered/Resolved]
  - Surgery [Unknown]

NARRATIVE: CASE EVENT DATE: 20241001
